FAERS Safety Report 9700978 (Version 2)
Quarter: 2013Q4

REPORT INFORMATION
  Report Type: Spontaneous
  Country: JP (occurrence: JP)
  Receive Date: 20131121
  Receipt Date: 20131209
  Transmission Date: 20140711
  Serious: No
  Sender: FDA-Public Use
  Company Number: JP-ASTELLAS-2013JP012769

PATIENT
  Age: 12 Year
  Sex: Female

DRUGS (1)
  1. PROGRAF [Suspect]
     Indication: ENCEPHALITIS
     Dosage: 1 MG, UNKNOWN/D
     Route: 048
     Dates: start: 201207

REACTIONS (2)
  - Off label use [Unknown]
  - Beta 2 microglobulin increased [Not Recovered/Not Resolved]
